FAERS Safety Report 12406829 (Version 1)
Quarter: 2016Q2

REPORT INFORMATION
  Report Type: Spontaneous
  Country: US (occurrence: US)
  Receive Date: 20160526
  Receipt Date: 20160526
  Transmission Date: 20160815
  Serious: No
  Sender: FDA-Public Use
  Company Number: US-JAZZ-JPI-P-012041

PATIENT
  Age: 44 Year
  Sex: Male
  Weight: 71.82 kg

DRUGS (2)
  1. XYREM [Suspect]
     Active Substance: SODIUM OXYBATE
     Indication: HYPERSOMNIA
     Dosage: 4.5 G, BID
     Route: 048
  2. XYREM [Suspect]
     Active Substance: SODIUM OXYBATE
     Indication: FIBROMYALGIA
     Dosage: UNK UNKNOWN, BID
     Route: 048
     Dates: start: 200910

REACTIONS (3)
  - Skin discolouration [Unknown]
  - Raynaud^s phenomenon [Not Recovered/Not Resolved]
  - Temperature intolerance [Unknown]

NARRATIVE: CASE EVENT DATE: 201003
